FAERS Safety Report 22669523 (Version 2)
Quarter: 2024Q2

REPORT INFORMATION
  Report Type: Spontaneous
  Country: ES (occurrence: ES)
  Receive Date: 20230704
  Receipt Date: 20240511
  Transmission Date: 20240716
  Serious: Yes (Other)
  Sender: FDA-Public Use
  Company Number: ES-EMA-DD-20230623-225467-151852

PATIENT
  Age: 40 Year
  Sex: Female

DRUGS (3)
  1. TERIFLUNOMIDE [Suspect]
     Active Substance: TERIFLUNOMIDE
     Indication: Relapsing-remitting multiple sclerosis
     Dosage: 14 MG, QD
  2. TERIFLUNOMIDE [Suspect]
     Active Substance: TERIFLUNOMIDE
     Dosage: 14 MG, QD, REINTRODUCED
  3. METHYLPREDNISOLONE [Concomitant]
     Active Substance: METHYLPREDNISOLONE
     Indication: Relapsing-remitting multiple sclerosis
     Dosage: 1000  MG, QD
     Route: 042

REACTIONS (7)
  - Raynaud^s phenomenon [Recovered/Resolved]
  - Peripheral vascular disorder [Recovered/Resolved]
  - Peripheral swelling [Recovered/Resolved]
  - Skin disorder [Recovered/Resolved]
  - Skin ulcer [Recovered/Resolved]
  - Nail disorder [Recovered/Resolved]
  - Skin discolouration [Recovered/Resolved]
